FAERS Safety Report 7185448-7 (Version None)
Quarter: 2010Q4

REPORT INFORMATION
  Report Type: 
  Country: None (occurrence: None)
  Receive Date: 20101222
  Receipt Date: 20101216
  Transmission Date: 20110411
  Serious: Yes (Other)
  Sender: FDA-Public Use
  Company Number: GB-TEVA-247221ISR

PATIENT
  Age: 42 Year
  Sex: Female

DRUGS (1)
  1. CARBOPLATIN [Suspect]
     Indication: METASTATIC CARCINOMA OF THE BLADDER

REACTIONS (1)
  - HYPOPHOSPHATAEMIA [None]
